FAERS Safety Report 13771327 (Version 1)
Quarter: 2017Q3

REPORT INFORMATION
  Report Type: Spontaneous
  Country: NL (occurrence: NL)
  Receive Date: 20170720
  Receipt Date: 20170720
  Transmission Date: 20171127
  Serious: Yes (Hospitalization)
  Sender: FDA-Public Use
  Company Number: NL-ASTRAZENECA-2017SE72532

PATIENT
  Age: 24597 Day
  Sex: Female

DRUGS (1)
  1. ATACAND PLUS [Suspect]
     Active Substance: CANDESARTAN CILEXETIL\HYDROCHLOROTHIAZIDE
     Indication: HYPERTENSION
     Dosage: 1X PER DAG 1 TABLET
     Route: 048
     Dates: start: 2006, end: 20170711

REACTIONS (2)
  - Oedema mucosal [Recovered/Resolved]
  - Angioedema [Recovering/Resolving]

NARRATIVE: CASE EVENT DATE: 20170401
